FAERS Safety Report 18644938 (Version 2)
Quarter: 2021Q2

REPORT INFORMATION
  Report Type: Spontaneous
  Country: US (occurrence: US)
  Receive Date: 20201221
  Receipt Date: 20210416
  Transmission Date: 20210717
  Serious: No
  Sender: FDA-Public Use
  Company Number: US-PFIZER INC-2020502319

PATIENT
  Age: 60 Year
  Sex: Female

DRUGS (1)
  1. XELJANZ [Suspect]
     Active Substance: TOFACITINIB CITRATE
     Dosage: 5MG TABLETS UP TO 2 TABLETS PER DAY

REACTIONS (2)
  - COVID-19 [Unknown]
  - Vitamin D deficiency [Unknown]
